FAERS Safety Report 6356034-3 (Version None)
Quarter: 2009Q3

REPORT INFORMATION
  Report Type: 
  Country: None (occurrence: None)
  Receive Date: 20090910
  Receipt Date: 20090910
  Transmission Date: 20100115
  Serious: Yes (Hospitalization)
  Sender: FDA-Public Use
  Company Number: None

PATIENT
  Sex: Male
  Weight: 84.4 kg

DRUGS (4)
  1. TEMOZOLOMIDE [Suspect]
     Dosage: 430 MG
  2. DEXAMETHASONE [Concomitant]
  3. FRAGMIN [Concomitant]
  4. RANITIDINE [Concomitant]

REACTIONS (1)
  - HERPES ZOSTER [None]
